FAERS Safety Report 16993593 (Version 1)
Quarter: 2019Q4

REPORT INFORMATION
  Report Type: Spontaneous
  Country: US (occurrence: US)
  Receive Date: 20191105
  Receipt Date: 20191105
  Transmission Date: 20200122
  Serious: Yes (Other)
  Sender: FDA-Public Use
  Company Number: US-AMERICAN REGENT INC-2019002364

PATIENT
  Age: 67 Year
  Sex: Female

DRUGS (2)
  1. TRANEXAMIC ACID INJECTION(0517-0960-01) [Suspect]
     Active Substance: TRANEXAMIC ACID
     Dosage: 10 MILLIGRAM/KG/HR
     Route: 042
  2. TRANEXAMIC ACID INJECTION(0517-0960-01) [Suspect]
     Active Substance: TRANEXAMIC ACID
     Indication: HAEMORRHAGE PROPHYLAXIS
     Dosage: 30 MILLIGRAM/KG
     Route: 042

REACTIONS (2)
  - Product use in unapproved indication [Unknown]
  - Atrial fibrillation [Recovered/Resolved]
